FAERS Safety Report 8695480 (Version 2)
Quarter: 2012Q4

REPORT INFORMATION
  Report Type: 
  Country: US (occurrence: US)
  Receive Date: 20120731
  Receipt Date: 20121026
  Transmission Date: 20130627
  Serious: Yes (Death, Hospitalization, Other)
  Sender: FDA-Public Use
  Company Number: US-PFIZER INC-2012179724

PATIENT
  Age: 75 Year
  Sex: Female
  Weight: 61.8 kg

DRUGS (5)
  1. REVATIO [Suspect]
     Indication: PULMONARY HYPERTENSION
     Dosage: 20 mg, 3x/day
     Route: 048
     Dates: start: 201109, end: 20111031
  2. REMODULIN [Suspect]
     Indication: PULMONARY ARTERIAL HYPERTENSION
     Dosage: UNK
     Dates: start: 20111128
  3. REMODULIN [Suspect]
     Dosage: 31.68 ug/kg (0.22 ug/kg, 1 in 1 min)
     Route: 041
     Dates: start: 20111206
  4. COUMADIN [Concomitant]
  5. COREG [Concomitant]
     Dosage: UNK

REACTIONS (7)
  - Chronic obstructive pulmonary disease [Fatal]
  - Pulmonary hypertension [Fatal]
  - Fluid retention [Recovering/Resolving]
  - Dyspnoea [Recovering/Resolving]
  - Dyspnoea [Recovering/Resolving]
  - Fatigue [Recovering/Resolving]
  - Right ventricular failure [Unknown]
